FAERS Safety Report 8282171-2 (Version None)
Quarter: 2012Q2

REPORT INFORMATION
  Report Type: 
  Country: None (occurrence: None)
  Receive Date: 20120413
  Receipt Date: 20120330
  Transmission Date: 20120825
  Serious: Yes (Other)
  Sender: FDA-Public Use
  Company Number: PHHY2012JP028273

PATIENT
  Sex: Male
  Weight: 51 kg

DRUGS (7)
  1. VESICARE [Concomitant]
     Dosage: 5 MG, UNK
     Route: 048
     Dates: start: 20100427, end: 20100827
  2. AMLODIPINE [Concomitant]
     Dosage: 5 MG, UNK
  3. LENDORMIN [Concomitant]
     Dosage: 0.25 MG, UNK
     Route: 048
     Dates: start: 20100216
  4. LEVOTHYROXINE SODIUM [Concomitant]
     Dosage: 25 UG, UNK
     Route: 048
     Dates: start: 20100216
  5. DIOVAN HCT [Suspect]
     Indication: HYPERTENSION
     Dosage: 1 DF, QD
     Route: 048
     Dates: start: 20100412, end: 20100731
  6. AMLODIPINE [Concomitant]
     Indication: HYPERTENSION
     Dosage: 10 MG, UNK
     Route: 048
     Dates: start: 20100216, end: 20100731
  7. LORAZEPAM [Concomitant]
     Dosage: 0.5 MG, UNK
     Route: 048
     Dates: start: 20100216

REACTIONS (3)
  - POLLAKIURIA [None]
  - BLOOD PRESSURE DIASTOLIC DECREASED [None]
  - HEPATIC FUNCTION ABNORMAL [None]
